FAERS Safety Report 21550361 (Version 1)
Quarter: 2022Q4

REPORT INFORMATION
  Report Type: Spontaneous
  Country: US (occurrence: US)
  Receive Date: 20221103
  Receipt Date: 20221103
  Transmission Date: 20230113
  Serious: No
  Sender: FDA-Public Use
  Company Number: US-SA-SAC20221103000044

PATIENT
  Age: 65 Year
  Sex: Female

DRUGS (5)
  1. AUBAGIO [Suspect]
     Active Substance: TERIFLUNOMIDE
     Route: 048
  2. VUMERITY [Suspect]
     Active Substance: DIROXIMEL FUMARATE
  3. AVONEX [Concomitant]
     Active Substance: INTERFERON BETA-1A
  4. NAPROXEN [Concomitant]
     Active Substance: NAPROXEN
  5. COPAXONE [Concomitant]
     Active Substance: GLATIRAMER ACETATE

REACTIONS (8)
  - Dyskinesia [Unknown]
  - Influenza like illness [Unknown]
  - Tremor [Unknown]
  - Dysgraphia [Unknown]
  - Injection site pruritus [Unknown]
  - Diarrhoea [Unknown]
  - Shoulder arthroplasty [Unknown]
  - Drug ineffective [Unknown]
